FAERS Safety Report 6264208-5 (Version None)
Quarter: 2009Q3

REPORT INFORMATION
  Report Type: 
  Country: None (occurrence: None)
  Receive Date: 20090710
  Receipt Date: 20090706
  Transmission Date: 20100115
  Serious: Yes (Life-Threatening, Hospitalization)
  Sender: FDA-Public Use
  Company Number: AU-ASTRAZENECA-2008AP06905

PATIENT
  Age: 25 Year
  Sex: Female
  Weight: 60 kg

DRUGS (2)
  1. NAROPIN [Suspect]
     Indication: ANAESTHESIA
     Route: 053
     Dates: start: 20080820
  2. NAROPIN [Suspect]
     Route: 053
     Dates: end: 20080820

REACTIONS (3)
  - ANAESTHETIC COMPLICATION [None]
  - OVERDOSE [None]
  - PARTIAL SEIZURES [None]
